FAERS Safety Report 13239471 (Version 2)
Quarter: 2017Q1

REPORT INFORMATION
  Report Type: Spontaneous
  Country: US (occurrence: US)
  Receive Date: 20170216
  Receipt Date: 20170327
  Transmission Date: 20170428
  Serious: No
  Sender: FDA-Public Use
  Company Number: US-009507513-1701USA012907

PATIENT
  Age: 63 Year
  Sex: Male

DRUGS (3)
  1. CINAPRIL [Concomitant]
  2. JANUMET XR [Suspect]
     Active Substance: METFORMIN HYDROCHLORIDE\SITAGLIPTIN PHOSPHATE
     Indication: DIABETES MELLITUS
     Dosage: 50/1000 MG DF, ONCE DAILY
     Route: 048
     Dates: start: 201612
  3. ZORVOLEX [Concomitant]
     Active Substance: DICLOFENAC

REACTIONS (3)
  - Inappropriate schedule of drug administration [Unknown]
  - Abdominal pain [Not Recovered/Not Resolved]
  - Nausea [Not Recovered/Not Resolved]

NARRATIVE: CASE EVENT DATE: 201612
